FAERS Safety Report 14974400 (Version 1)
Quarter: 2018Q2

REPORT INFORMATION
  Report Type: Spontaneous
  Country: MX (occurrence: MX)
  Receive Date: 20180605
  Receipt Date: 20180605
  Transmission Date: 20180711
  Serious: Yes (Other)
  Sender: FDA-Public Use
  Company Number: MX-ELI_LILLY_AND_COMPANY-MX201806000218

PATIENT
  Age: 18 Year
  Sex: Female

DRUGS (1)
  1. SYMBYAX [Suspect]
     Active Substance: FLUOXETINE HYDROCHLORIDE\OLANZAPINE
     Indication: PRODUCT USED FOR UNKNOWN INDICATION
     Dosage: UNK, UNKNOWN
     Route: 065
     Dates: start: 20180416

REACTIONS (3)
  - Obsessive-compulsive disorder [Recovering/Resolving]
  - Suicidal ideation [Recovering/Resolving]
  - Condition aggravated [None]

NARRATIVE: CASE EVENT DATE: 20180427
